FAERS Safety Report 25002553 (Version 3)
Quarter: 2025Q2

REPORT INFORMATION
  Report Type: Spontaneous
  Country: US (occurrence: US)
  Receive Date: 20250224
  Receipt Date: 20250521
  Transmission Date: 20250716
  Serious: Yes (Other)
  Sender: SANOFI AVENTIS
  Company Number: US-SA-2025SA052166

PATIENT
  Age: 64 Year
  Sex: Male

DRUGS (2)
  1. CAPRELSA [Suspect]
     Active Substance: VANDETANIB
     Indication: Thyroid cancer
     Route: 048
  2. CAPRELSA [Suspect]
     Active Substance: VANDETANIB
     Dosage: 300 MG, QD
     Route: 048
     Dates: start: 20231220, end: 2025

REACTIONS (6)
  - Glossodynia [Recovering/Resolving]
  - Oral pain [Recovering/Resolving]
  - Tongue erythema [Recovering/Resolving]
  - Dry mouth [Recovering/Resolving]
  - Throat irritation [Unknown]
  - Surgery [Unknown]

NARRATIVE: CASE EVENT DATE: 20250201
